FAERS Safety Report 5217362-8 (Version None)
Quarter: 2007Q1

REPORT INFORMATION
  Report Type: 
  Country: None (occurrence: None)
  Receive Date: 20070124
  Receipt Date: 20060126
  Transmission Date: 20070707
  Serious: No
  Sender: FDA-Public Use
  Company Number: US-GLAXOSMITHKLINE-A0589895A

PATIENT
  Age: 85 Year
  Sex: Female

DRUGS (8)
  1. PAXIL CR [Suspect]
     Dosage: 12.5MG PER DAY
     Route: 048
     Dates: start: 20051118, end: 20051120
  2. LIPITOR [Concomitant]
  3. BUSPAR [Concomitant]
  4. MICRO-K [Concomitant]
  5. HYDROCHLOROTHIAZIDE [Concomitant]
  6. PRINIVIL [Concomitant]
  7. PROTONIX [Concomitant]
  8. NORVASC [Concomitant]

REACTIONS (3)
  - EYE SWELLING [None]
  - OEDEMA PERIPHERAL [None]
  - SWELLING FACE [None]
